FAERS Safety Report 9747711 (Version 1)
Quarter: 2013Q4

REPORT INFORMATION
  Report Type: Spontaneous
  Country: JP (occurrence: JP)
  Receive Date: 20131212
  Receipt Date: 20131212
  Transmission Date: 20140711
  Serious: Yes (Hospitalization, Other)
  Sender: FDA-Public Use
  Company Number: JP-ACCORD-020720

PATIENT
  Age: 49 Year
  Sex: Male

DRUGS (3)
  1. TACROLIMUS [Suspect]
     Indication: IMMUNOSUPPRESSION
     Dosage: TROUGH LEVEL ADJUSTED TO 10-12 NG/ML DURING FIRST WEEK THEN TAPERED.
     Route: 048
  2. MYCOPHENOLATE MOFETIL [Suspect]
     Indication: IMMUNOSUPPRESSION
     Dosage: DOSES RANGED FROM 500 TO 1,000 MG/DAY
  3. METHYLPREDNISOLONE [Suspect]
     Indication: IMMUNOSUPPRESSION
     Dosage: 500 MG PER?SESSION FOR 3 DAYS; TOTAL DOSE OF 4.5 G FOR 20 DAYS
     Route: 041

REACTIONS (4)
  - Pulmonary embolism [Recovered/Resolved]
  - Decreased appetite [Unknown]
  - Staphylococcal sepsis [Recovered/Resolved]
  - Subcutaneous abscess [Recovered/Resolved]
